FAERS Safety Report 11651693 (Version 18)
Quarter: 2021Q4

REPORT INFORMATION
  Report Type: Other
  Country: CA (occurrence: None)
  Receive Date: 20151022
  Receipt Date: 20211214
  Transmission Date: 20220303
  Serious: Yes (Hospitalization, Other)
  Sender: FDA-Public Use
  Company Number: CA-ROCHE-1648204

PATIENT
  Age: 73 Year
  Sex: Female

DRUGS (32)
  1. RITUXAN [Suspect]
     Active Substance: RITUXIMAB
     Indication: Autoimmune myositis
     Dosage: DATE OF MOST RECENT DOSE: 25/AUG/2015?PREVIOUS RITUXAN INFUSION: 31/JUL/2019
     Route: 042
     Dates: start: 20150810
  2. RITUXAN [Suspect]
     Active Substance: RITUXIMAB
     Indication: Polymyositis
     Route: 042
     Dates: start: 20150825
  3. RITUXAN [Suspect]
     Active Substance: RITUXIMAB
     Route: 042
     Dates: start: 20171212
  4. RITUXAN [Suspect]
     Active Substance: RITUXIMAB
     Route: 042
     Dates: start: 20180620
  5. RITUXAN [Suspect]
     Active Substance: RITUXIMAB
     Route: 042
     Dates: start: 20190716
  6. CELLCEPT [Suspect]
     Active Substance: MYCOPHENOLATE MOFETIL
     Indication: Product used for unknown indication
     Route: 048
  7. CELLCEPT [Suspect]
     Active Substance: MYCOPHENOLATE MOFETIL
     Route: 048
  8. DIPHENHYDRAMINE HYDROCHLORIDE [Concomitant]
     Active Substance: DIPHENHYDRAMINE HYDROCHLORIDE
     Indication: Premedication
     Route: 048
     Dates: start: 20150810
  9. DIPHENHYDRAMINE HYDROCHLORIDE [Concomitant]
     Active Substance: DIPHENHYDRAMINE HYDROCHLORIDE
     Route: 048
     Dates: start: 20150825
  10. ACETAMINOPHEN [Concomitant]
     Active Substance: ACETAMINOPHEN
     Indication: Premedication
     Route: 048
     Dates: start: 20150825
  11. ACETAMINOPHEN [Concomitant]
     Active Substance: ACETAMINOPHEN
     Indication: Blood pressure systolic increased
     Route: 048
     Dates: start: 20150810, end: 20161121
  12. ACETAMINOPHEN [Concomitant]
     Active Substance: ACETAMINOPHEN
     Route: 048
     Dates: start: 20181217
  13. ACETAMINOPHEN [Concomitant]
     Active Substance: ACETAMINOPHEN
     Route: 048
     Dates: start: 20150825
  14. ACETAMINOPHEN [Concomitant]
     Active Substance: ACETAMINOPHEN
     Route: 048
     Dates: start: 20170517
  15. SULFASALAZINE [Concomitant]
     Active Substance: SULFASALAZINE
  16. SALOFALK [Concomitant]
  17. METHYLPREDNISOLONE [Concomitant]
     Active Substance: METHYLPREDNISOLONE
     Indication: Premedication
     Route: 042
     Dates: start: 20150810
  18. METHYLPREDNISOLONE [Concomitant]
     Active Substance: METHYLPREDNISOLONE
     Route: 042
     Dates: start: 20150825
  19. OXYCODONE [Concomitant]
     Active Substance: OXYCODONE
  20. TYLENOL [Concomitant]
     Active Substance: ACETAMINOPHEN
  21. VITAMIN B12 [Concomitant]
     Active Substance: CYANOCOBALAMIN
  22. RANITIDINE [Concomitant]
     Active Substance: RANITIDINE
  23. PROCHLORAZINE [Concomitant]
  24. NIDAGEL [Concomitant]
  25. IRON [Concomitant]
     Active Substance: IRON
  26. FOLIC ACID [Concomitant]
     Active Substance: FOLIC ACID
  27. CLONAZEPAM [Concomitant]
     Active Substance: CLONAZEPAM
  28. CALCIUM [Concomitant]
     Active Substance: CALCIUM
  29. ALENDRONATE [Concomitant]
     Active Substance: ALENDRONATE SODIUM
  30. BISOPROLOL [Concomitant]
     Active Substance: BISOPROLOL
     Indication: Blood pressure measurement
     Dates: end: 201812
  31. PREDNISONE [Concomitant]
     Active Substance: PREDNISONE
  32. PREDNISONE [Concomitant]
     Active Substance: PREDNISONE
     Route: 048

REACTIONS (37)
  - Fall [Unknown]
  - Balance disorder [Unknown]
  - Vaginal haemorrhage [Not Recovered/Not Resolved]
  - Anal incontinence [Not Recovered/Not Resolved]
  - Muscular weakness [Unknown]
  - Bradycardia [Unknown]
  - Colitis ulcerative [Not Recovered/Not Resolved]
  - Gastroenteritis [Recovered/Resolved]
  - Halo vision [Recovered/Resolved]
  - Asthenia [Unknown]
  - Abdominal pain [Not Recovered/Not Resolved]
  - Diarrhoea [Not Recovered/Not Resolved]
  - Nausea [Unknown]
  - Back pain [Unknown]
  - Muscle spasms [Unknown]
  - Ill-defined disorder [Unknown]
  - Influenza [Unknown]
  - Productive cough [Not Recovered/Not Resolved]
  - Headache [Not Recovered/Not Resolved]
  - Pulmonary pain [Not Recovered/Not Resolved]
  - Oropharyngeal pain [Not Recovered/Not Resolved]
  - Female reproductive tract disorder [Unknown]
  - Bronchitis [Not Recovered/Not Resolved]
  - Dental caries [Not Recovered/Not Resolved]
  - Ophthalmic migraine [Not Recovered/Not Resolved]
  - Blood pressure systolic increased [Unknown]
  - Arthralgia [Unknown]
  - Blood pressure systolic abnormal [Unknown]
  - Off label use [Unknown]
  - Blood pressure fluctuation [Unknown]
  - Ophthalmic migraine [Not Recovered/Not Resolved]
  - Myalgia [Unknown]
  - Fungal infection [Not Recovered/Not Resolved]
  - Oxygen saturation decreased [Unknown]
  - Abdominal distension [Unknown]
  - Nausea [Unknown]
  - Blood pressure increased [Unknown]

NARRATIVE: CASE EVENT DATE: 20150810
